FAERS Safety Report 18384267 (Version 2)
Quarter: 2020Q4

REPORT INFORMATION
  Report Type: Spontaneous
  Country: US (occurrence: US)
  Receive Date: 20201014
  Receipt Date: 20201112
  Transmission Date: 20210114
  Serious: Yes (Hospitalization)
  Sender: FDA-Public Use
  Company Number: US-PFIZER INC-2019275846

PATIENT
  Age: 73 Year
  Sex: Male
  Weight: 116.5 kg

DRUGS (4)
  1. REVATIO [Suspect]
     Active Substance: SILDENAFIL CITRATE
     Indication: PULMONARY HYPERTENSION
     Dosage: UNK, DAILY (3 HALF PILLS OR 2 HALF PILLS A DAY)
  2. REVATIO [Suspect]
     Active Substance: SILDENAFIL CITRATE
     Dosage: 20 MG, 2X/DAY (IN THE MORNING AND IN THE EVENING)
     Route: 048
     Dates: start: 201906
  3. REVATIO [Suspect]
     Active Substance: SILDENAFIL CITRATE
     Dosage: 20 MG, 2X/DAY (1 Q (EVERYDAY) 12 HR)
  4. REVATIO [Suspect]
     Active Substance: SILDENAFIL CITRATE
     Dosage: 0.5 DF, 3X/DAY (WAS TAKING HALF A TABLET 3 TIMES A DAY BEFORE THAT, DATING BACK TO JUL2017)
     Dates: start: 201707

REACTIONS (4)
  - Chest pain [Recovered/Resolved]
  - Fall [Not Recovered/Not Resolved]
  - Off label use [Unknown]
  - Product use issue [Unknown]

NARRATIVE: CASE EVENT DATE: 201906
